FAERS Safety Report 19505841 (Version 6)
Quarter: 2021Q4

REPORT INFORMATION
  Report Type: Spontaneous
  Country: PT (occurrence: PT)
  Receive Date: 20210708
  Receipt Date: 20211125
  Transmission Date: 20220303
  Serious: Yes (Death, Life-Threatening, Hospitalization, Other)
  Sender: FDA-Public Use
  Company Number: PT-MLMSERVICE-20210616-2953869-1

PATIENT
  Age: 72 Year
  Sex: Male

DRUGS (2)
  1. ATORVASTATIN CALCIUM [Suspect]
     Active Substance: ATORVASTATIN CALCIUM
     Dosage: 40 MG, 1X/DAY
     Route: 048
  2. PITAVASTATIN [Suspect]
     Active Substance: PITAVASTATIN
     Dosage: 4 MG, 1X/DAY
     Route: 048
     Dates: start: 201911, end: 201912

REACTIONS (6)
  - Respiratory tract infection [Fatal]
  - Pneumonia aspiration [Fatal]
  - Immune-mediated myositis [Recovered/Resolved]
  - Condition aggravated [Not Recovered/Not Resolved]
  - Therapeutic response decreased [Unknown]
  - Product communication issue [Unknown]

NARRATIVE: CASE EVENT DATE: 20191201
